FAERS Safety Report 8953591 (Version 2)
Quarter: 2013Q1

REPORT INFORMATION
  Report Type: Spontaneous
  Country: US (occurrence: US)
  Receive Date: 20121206
  Receipt Date: 20130325
  Transmission Date: 20140127
  Serious: Yes (Hospitalization)
  Sender: FDA-Public Use
  Company Number: US-GILEAD-2012-0065758

PATIENT
  Sex: Male

DRUGS (4)
  1. LETAIRIS [Suspect]
     Indication: PULMONARY HYPERTENSION
     Dosage: 5 MG, UNK
     Route: 048
     Dates: start: 20120504
  2. LETAIRIS [Suspect]
     Indication: MALIGNANT HYPERTENSION
  3. LETAIRIS [Suspect]
     Indication: FLUID OVERLOAD
  4. LETAIRIS [Suspect]
     Indication: RENAL FAILURE CHRONIC

REACTIONS (1)
  - Diabetic ulcer [Unknown]
